FAERS Safety Report 16048783 (Version 3)
Quarter: 2019Q3

REPORT INFORMATION
  Report Type: Spontaneous
  Country: US (occurrence: US)
  Receive Date: 20190307
  Receipt Date: 20190709
  Transmission Date: 20191004
  Serious: No
  Sender: FDA-Public Use
  Company Number: US-SA-2019SA063603

PATIENT
  Age: 56 Year
  Sex: Female

DRUGS (1)
  1. AUBAGIO [Suspect]
     Active Substance: TERIFLUNOMIDE
     Indication: MULTIPLE SCLEROSIS
     Dosage: 14 MG, QD
     Route: 048
     Dates: start: 20170913

REACTIONS (5)
  - Skin swelling [Unknown]
  - Alopecia [Unknown]
  - Hair texture abnormal [Unknown]
  - Product use issue [Unknown]
  - Ingrown hair [Unknown]

NARRATIVE: CASE EVENT DATE: 201905
